FAERS Safety Report 18428808 (Version 10)
Quarter: 2024Q3

REPORT INFORMATION
  Report Type: Report from Study
  Country: IL (occurrence: IL)
  Receive Date: 20201027
  Receipt Date: 20240824
  Transmission Date: 20241016
  Serious: Yes (Death, Hospitalization, Other)
  Sender: ABBVIE
  Company Number: IL-ABBVIE-20K-082-3620018-00

PATIENT
  Age: 75 Year
  Sex: Male
  Weight: 68 kg

DRUGS (32)
  1. VENETOCLAX [Suspect]
     Active Substance: VENETOCLAX
     Indication: Chronic lymphocytic leukaemia
     Dosage: 20 MG, DOSE INCREASE ACCORDING TO VENETOCLAX DOSE TITRATION SCHEME
     Route: 048
     Dates: start: 20190408, end: 20190415
  2. VENETOCLAX [Suspect]
     Active Substance: VENETOCLAX
     Indication: Chronic lymphocytic leukaemia
     Route: 048
     Dates: start: 20190416, end: 20190422
  3. VENETOCLAX [Suspect]
     Active Substance: VENETOCLAX
     Indication: Chronic lymphocytic leukaemia
     Route: 048
     Dates: start: 20190423, end: 20190428
  4. VENETOCLAX [Suspect]
     Active Substance: VENETOCLAX
     Indication: Chronic lymphocytic leukaemia
     Route: 048
     Dates: start: 20190429, end: 20190505
  5. VENETOCLAX [Suspect]
     Active Substance: VENETOCLAX
     Indication: Chronic lymphocytic leukaemia
     Route: 048
     Dates: start: 20190506, end: 20200504
  6. RITUXIMAB [Suspect]
     Active Substance: RITUXIMAB
     Indication: Product used for unknown indication
     Dosage: 600 MG CYCLE NUMBER 1
     Route: 065
     Dates: start: 20191028, end: 20191028
  7. RITUXIMAB [Suspect]
     Active Substance: RITUXIMAB
     Indication: Product used for unknown indication
     Dosage: 600 MG CYCLE NUMBER 2
     Route: 065
     Dates: start: 20191125, end: 20191125
  8. RITUXIMAB [Suspect]
     Active Substance: RITUXIMAB
     Indication: Product used for unknown indication
     Dosage: 600 MG CYCLE NUMBER 4
     Route: 065
     Dates: start: 20200127, end: 20200127
  9. RITUXIMAB [Suspect]
     Active Substance: RITUXIMAB
     Indication: Product used for unknown indication
     Dosage: 600 MG CYCLE NUMBER 5
     Route: 065
     Dates: start: 20200224, end: 20200224
  10. RITUXIMAB [Suspect]
     Active Substance: RITUXIMAB
     Indication: Product used for unknown indication
     Dosage: 600 MG CYCLE NUMBER 3
     Route: 065
     Dates: start: 20191223, end: 20191223
  11. RITUXIMAB [Suspect]
     Active Substance: RITUXIMAB
     Indication: Product used for unknown indication
     Dosage: 600 MG CYCLE NUMBER 6
     Route: 065
     Dates: start: 20200325, end: 20200325
  12. RITUXIMAB [Suspect]
     Active Substance: RITUXIMAB
     Indication: Product used for unknown indication
     Dosage: 600 MG CYCLE NUMBER 7
     Route: 065
     Dates: start: 20200422
  13. ASPIRIN [Concomitant]
     Active Substance: ASPIRIN
     Indication: Prophylaxis
     Dates: start: 20160525, end: 20200601
  14. OFLOXACIN [Concomitant]
     Active Substance: OFLOXACIN
     Indication: Prophylaxis
     Dates: start: 20180516, end: 20220204
  15. TAMSULOSIN HYDROCHLORIDE [Concomitant]
     Active Substance: TAMSULOSIN HYDROCHLORIDE
     Indication: Benign prostatic hyperplasia
     Dates: start: 20180107, end: 20220204
  16. FILGRASTIM [Concomitant]
     Active Substance: FILGRASTIM
     Indication: Neutropenia
     Dates: start: 20190918, end: 20220204
  17. FILGRASTIM [Concomitant]
     Active Substance: FILGRASTIM
     Indication: Neutropenia
     Dates: start: 20200830
  18. PREDNISONE [Concomitant]
     Active Substance: PREDNISONE
     Indication: Thrombocytopenia
     Dates: start: 20200422, end: 20200518
  19. PREDNISONE [Concomitant]
     Active Substance: PREDNISONE
     Indication: Thrombocytopenia
     Dates: start: 20200602, end: 20220204
  20. TAMIFLU [Concomitant]
     Active Substance: OSELTAMIVIR PHOSPHATE
     Indication: Influenza
     Dosage: LAST ADMIN DATE JAN 2020
     Dates: start: 20200112
  21. LIPITOR [Concomitant]
     Active Substance: ATORVASTATIN CALCIUM
     Indication: Hypercholesterolaemia
     Dates: start: 20190219, end: 20220204
  22. ELTROMBOPAG OLAMINE [Concomitant]
     Active Substance: ELTROMBOPAG OLAMINE
     Indication: Thrombocytopenia
     Dates: start: 20200518, end: 20220204
  23. Nystatine p [Concomitant]
     Indication: Prophylaxis
     Dates: start: 20200602, end: 20220204
  24. Cartia [Concomitant]
     Indication: Prophylaxis
     Dates: start: 20121120
  25. LANTON [Concomitant]
     Indication: Prophylaxis
     Dates: start: 20131013, end: 20220204
  26. VORICONAZOLE [Concomitant]
     Active Substance: VORICONAZOLE
     Indication: Antiinflammatory therapy
     Dosage: LAST ADMIN DATE 2020
     Dates: start: 20200708
  27. LEVOFLOXACIN [Concomitant]
     Active Substance: LEVOFLOXACIN
     Indication: Antiinflammatory therapy
     Dates: start: 20200708, end: 20200715
  28. CEFTRIAXONE [Concomitant]
     Active Substance: CEFTRIAXONE\CEFTRIAXONE SODIUM
     Indication: Escherichia bacteraemia
     Dates: start: 20220115, end: 20220122
  29. AMOXICILLIN [Concomitant]
     Active Substance: AMOXICILLIN
     Indication: Escherichia bacteraemia
     Dates: start: 20220123, end: 20220124
  30. ACYCLOVIR [Concomitant]
     Active Substance: ACYCLOVIR
     Indication: Herpes simplex
     Dates: start: 20220115, end: 20220204
  31. COVID-19 vaccine [Concomitant]
     Indication: COVID-19 prophylaxis
     Dosage: 1 IN 1 ONCE SECOND DOSE
     Dates: start: 20210211, end: 20210211
  32. COVID-19 vaccine [Concomitant]
     Indication: COVID-19 prophylaxis
     Dosage: 1 IN 1 ONCE FIRST DOSE
     Route: 030
     Dates: start: 20210121, end: 20210121

REACTIONS (12)
  - Febrile neutropenia [Fatal]
  - Influenza [Recovered/Resolved]
  - Myelodysplastic syndrome [Recovered/Resolved]
  - Myelodysplastic syndrome [Not Recovered/Not Resolved]
  - Thrombocytopenia [Not Recovered/Not Resolved]
  - Pneumonitis [Not Recovered/Not Resolved]
  - Neutropenia [Recovered/Resolved]
  - Neutropenia [Not Recovered/Not Resolved]
  - Pyrexia [Recovered/Resolved]
  - Escherichia bacteraemia [Recovered/Resolved]
  - Escherichia bacteraemia [Not Recovered/Not Resolved]
  - Acute myeloid leukaemia [Fatal]

NARRATIVE: CASE EVENT DATE: 20190529
